FAERS Safety Report 13081875 (Version 1)
Quarter: 2017Q1

REPORT INFORMATION
  Report Type: Report from Study
  Country: ES (occurrence: ES)
  Receive Date: 20170103
  Receipt Date: 20170103
  Transmission Date: 20170428
  Serious: Yes (Death, Hospitalization)
  Sender: FDA-Public Use
  Company Number: ES-BAYER-2016-243096

PATIENT
  Age: 81 Year
  Sex: Male

DRUGS (3)
  1. ADIRO 100 MG GASTRO RESISTANT TABLET 30 TABLETS [Suspect]
     Active Substance: ASPIRIN
     Indication: PERIPHERAL ISCHAEMIA
     Dosage: 100 MG, QD
     Route: 048
     Dates: start: 20110629, end: 20150615
  2. PRITOR PLUS [Concomitant]
     Active Substance: TELMISARTAN
     Indication: HYPERTENSION
     Dosage: 1 DF, QD
     Route: 048
     Dates: start: 20100715
  3. METFORMIN [Concomitant]
     Active Substance: METFORMIN HYDROCHLORIDE
     Indication: TYPE 2 DIABETES MELLITUS
     Dosage: 425 MG, BID
     Route: 048
     Dates: start: 20140926

REACTIONS (1)
  - Cerebral haemorrhage [Fatal]

NARRATIVE: CASE EVENT DATE: 20150615
